FAERS Safety Report 4896685-6 (Version None)
Quarter: 2005Q4

REPORT INFORMATION
  Report Type: 
  Country: None (occurrence: None)
  Receive Date: 20051221
  Receipt Date: 20050708
  Transmission Date: 20060501
  Serious: Yes (Hospitalization)
  Sender: FDA-Public Use
  Company Number: FRVA20050012

PATIENT
  Age: 43 Year
  Sex: Female

DRUGS (10)
  1. FROVATRIPTAN 2.5 MG VERNALIS [Suspect]
     Indication: MIGRAINE
     Dosage: 2.5 MG DAILY PO
     Route: 048
     Dates: start: 20050613, end: 20050613
  2. PLACEBO 2.5 MG VERNALIS [Suspect]
     Indication: MIGRAINE
     Dosage: 2.5 MG BID PO ; 5 MG BID PO
     Route: 048
     Dates: start: 20050515, end: 20050515
  3. PLACEBO 2.5 MG VERNALIS [Suspect]
     Indication: MIGRAINE
     Dosage: 2.5 MG BID PO ; 5 MG BID PO
     Route: 048
     Dates: start: 20050516, end: 20050520
  4. EXTRA STRENGTH TYLENOL [Concomitant]
  5. IBUPROFEN [Concomitant]
  6. SUDAFED 12 HOUR [Concomitant]
  7. ASCORBIC ACID [Concomitant]
  8. CLARITIN [Concomitant]
  9. EXCEDRIN (MIGRAINE) [Concomitant]
  10. TYLENOL ALLERGY [Concomitant]

REACTIONS (1)
  - CHEST DISCOMFORT [None]
